FAERS Safety Report 13262674 (Version 1)
Quarter: 2017Q1

REPORT INFORMATION
  Report Type: Report from Study
  Country: JP (occurrence: JP)
  Receive Date: 20170223
  Receipt Date: 20170223
  Transmission Date: 20170428
  Serious: Yes (Hospitalization)
  Sender: FDA-Public Use
  Company Number: JP-ACTELION-A-CH2017-149924

PATIENT
  Age: 48 Year
  Sex: Female

DRUGS (18)
  1. BIO-THREE [Concomitant]
     Active Substance: HERBALS
  2. CEFAZOLIN [Concomitant]
     Active Substance: CEFAZOLIN
  3. HIRUDOID [Concomitant]
     Active Substance: GLYCOSAMINOGLYCANS
  4. PREDONINE [Concomitant]
     Active Substance: PREDNISOLONE
  5. TRACLEER [Suspect]
     Active Substance: BOSENTAN
     Dosage: 62.5 MG, OD
     Route: 048
     Dates: start: 20161020, end: 20161104
  6. GEBEN [Concomitant]
     Active Substance: SILVER SULFADIAZINE
  7. TRACLEER [Suspect]
     Active Substance: BOSENTAN
     Indication: SCLERODERMA ASSOCIATED DIGITAL ULCER
     Dosage: 62.5 MG, OD
     Route: 048
     Dates: start: 20160825, end: 20160915
  8. FUROSEMIDE. [Suspect]
     Active Substance: FUROSEMIDE
     Indication: PRODUCT USED FOR UNKNOWN INDICATION
     Dosage: UNK
     Route: 042
     Dates: end: 20161121
  9. PROCYLIN [Concomitant]
     Active Substance: BERAPROST SODIUM
  10. BONALON [Concomitant]
     Active Substance: ALENDRONATE SODIUM
  11. BAKTAR [Concomitant]
     Active Substance: SULFAMETHOXAZOLE\TRIMETHOPRIM
  12. TRACLEER [Suspect]
     Active Substance: BOSENTAN
     Dosage: 62.5 MG, OD
     Route: 048
     Dates: start: 20161118
  13. TAKECAB [Concomitant]
     Active Substance: VONOPRAZAN FUMURATE
  14. ANPLAG [Concomitant]
     Active Substance: SARPOGRELATE
  15. GASMOTIN [Concomitant]
     Active Substance: MOSAPRIDE CITRATE
  16. SPIRONOLACTON [Suspect]
     Active Substance: SPIRONOLACTONE
     Indication: PRODUCT USED FOR UNKNOWN INDICATION
     Route: 048
  17. PALUX [Concomitant]
     Active Substance: ALPROSTADIL
  18. FERROMIA [Concomitant]
     Active Substance: FERROUS CITRATE

REACTIONS (23)
  - Arrhythmia supraventricular [Not Recovered/Not Resolved]
  - Supraventricular tachycardia [Not Recovered/Not Resolved]
  - Oedema peripheral [Recovering/Resolving]
  - Diarrhoea [Recovering/Resolving]
  - Renal impairment [Not Recovered/Not Resolved]
  - Systemic lupus erythematosus [Not Recovered/Not Resolved]
  - Condition aggravated [Not Recovered/Not Resolved]
  - Malaise [Recovering/Resolving]
  - Hypokalaemia [Recovered/Resolved]
  - Skin ulcer [Recovering/Resolving]
  - Systemic scleroderma [Not Recovered/Not Resolved]
  - Hepatic function abnormal [Recovered/Resolved]
  - Joint contracture [Recovering/Resolving]
  - Decubitus ulcer [Recovering/Resolving]
  - Respiratory disorder [Recovered/Resolved with Sequelae]
  - Cough [Recovered/Resolved with Sequelae]
  - Pleurisy [Recovering/Resolving]
  - Pulmonary oedema [Recovering/Resolving]
  - Cardiomegaly [Recovered/Resolved with Sequelae]
  - Pleural effusion [Recovered/Resolved with Sequelae]
  - Cardiac failure congestive [Recovered/Resolved with Sequelae]
  - Infection [Recovering/Resolving]
  - Pulmonary hypertension [Recovered/Resolved]

NARRATIVE: CASE EVENT DATE: 20160912
